FAERS Safety Report 6301153-0 (Version None)
Quarter: 2009Q3

REPORT INFORMATION
  Report Type: 
  Country: None (occurrence: None)
  Receive Date: 20090807
  Receipt Date: 20090803
  Transmission Date: 20100115
  Serious: Yes (Death, Hospitalization)
  Sender: FDA-Public Use
  Company Number: NL-B.I. PHARMACEUTICALS,INC./RIDGEFIELD-2009-NL-00480NL

PATIENT
  Sex: Male
  Weight: 80 kg

DRUGS (5)
  1. MICARDIS [Suspect]
     Indication: PROTEINURIA
     Dates: start: 20081016, end: 20090417
  2. MICARDIS [Suspect]
     Indication: HYPERTENSION
  3. PERINDOPRIL 10MG [Suspect]
     Indication: PROTEINURIA
     Dates: start: 20080509
  4. PERINDOPRIL 10MG [Suspect]
     Indication: HYPERTENSION
  5. METOPROLOL SUCCINATE [Concomitant]
     Indication: ATRIAL FIBRILLATION
     Dates: start: 20040101

REACTIONS (2)
  - MEDICATION ERROR [None]
  - RENAL FAILURE [None]
